FAERS Safety Report 6714469-0 (Version None)
Quarter: 2010Q2

REPORT INFORMATION
  Report Type: 
  Country: None (occurrence: None)
  Receive Date: 20100506
  Receipt Date: 20100426
  Transmission Date: 20101027
  Serious: Yes (Hospitalization)
  Sender: FDA-Public Use
  Company Number: US-WATSON-2010-05589

PATIENT
  Age: 66 Year
  Sex: Female

DRUGS (2)
  1. CARISOPRODOL (WATSON LABORATORIES) [Suspect]
     Indication: BACK PAIN
     Dosage: UNK
     Route: 048
     Dates: start: 20000101
  2. CARISOPRODOL (WATSON LABORATORIES) [Suspect]
     Indication: DEPENDENCE

REACTIONS (4)
  - DELIRIUM [None]
  - DEPENDENCE [None]
  - OVERDOSE [None]
  - ROAD TRAFFIC ACCIDENT [None]
